FAERS Safety Report 17958305 (Version 1)
Quarter: 2020Q2

REPORT INFORMATION
  Report Type: Spontaneous
  Country: JP (occurrence: JP)
  Receive Date: 20200629
  Receipt Date: 20200629
  Transmission Date: 20200714
  Serious: Yes (Death)
  Sender: FDA-Public Use
  Company Number: JP-MALLINCKRODT-T202002878

PATIENT
  Sex: Male
  Weight: 3 kg

DRUGS (8)
  1. INOFLO [Suspect]
     Active Substance: NITRIC OXIDE
     Indication: NEWBORN PERSISTENT PULMONARY HYPERTENSION
     Dosage: UNK, INHALATION
     Route: 055
  2. HYDROCORTISONE. [Concomitant]
     Active Substance: HYDROCORTISONE
     Indication: NEWBORN PERSISTENT PULMONARY HYPERTENSION
     Dosage: UNK
     Route: 065
  3. METHYLPREDNISOLONE. [Concomitant]
     Active Substance: METHYLPREDNISOLONE
     Indication: NEWBORN PERSISTENT PULMONARY HYPERTENSION
     Dosage: UNK
     Route: 065
  4. DOBUTAMINE [Concomitant]
     Active Substance: DOBUTAMINE HYDROCHLORIDE
     Indication: NEWBORN PERSISTENT PULMONARY HYPERTENSION
     Dosage: UNK
     Route: 065
  5. OXYGEN. [Concomitant]
     Active Substance: OXYGEN
     Indication: OXYGEN THERAPY
     Dosage: UNK
     Route: 065
  6. OXYGEN. [Concomitant]
     Active Substance: OXYGEN
     Indication: NEWBORN PERSISTENT PULMONARY HYPERTENSION
  7. DOPAMINE [Concomitant]
     Active Substance: DOPAMINE HYDROCHLORIDE
     Indication: NEWBORN PERSISTENT PULMONARY HYPERTENSION
     Dosage: UNK
     Route: 065
  8. ALBUMIN [Concomitant]
     Active Substance: ALBUMIN HUMAN
     Indication: NEWBORN PERSISTENT PULMONARY HYPERTENSION
     Dosage: UNK
     Route: 065

REACTIONS (3)
  - Circulatory failure neonatal [Fatal]
  - Hepatic fibrosis [Fatal]
  - Therapy non-responder [Unknown]
